FAERS Safety Report 4561484-1 (Version None)
Quarter: 2005Q1

REPORT INFORMATION
  Report Type: 
  Country: None (occurrence: None)
  Receive Date: 20050121
  Receipt Date: 20041213
  Transmission Date: 20050727
  Serious: Yes (Death, Other)
  Sender: FDA-Public Use
  Company Number: US_0501109971

PATIENT
  Age: 39 Year
  Sex: Male
  Weight: 127 kg

DRUGS (18)
  1. ZYPREXA [Suspect]
     Indication: BIPOLAR DISORDER
     Dosage: 20 MG
     Dates: start: 20011112, end: 20020913
  2. PROZAC [Suspect]
     Indication: INSOMNIA
     Dosage: 20 MG/1 DAY
     Dates: start: 19960815, end: 19960822
  3. EFFEXOR [Concomitant]
  4. LITHIUM [Concomitant]
  5. SEROQUEL [Concomitant]
  6. RISPERIDONE [Concomitant]
  7. AMANTADINE [Concomitant]
  8. TOPAMAX [Concomitant]
  9. ZOLOFT [Concomitant]
  10. RITALIN [Concomitant]
  11. NEURONTIN (GABAPENTIN PFIZER) [Concomitant]
  12. THORAZINE [Concomitant]
  13. DEPAKOTE [Concomitant]
  14. ATIVAN [Concomitant]
  15. AMBIEN [Concomitant]
  16. PROLIXIN [Concomitant]
  17. COGENTIN [Concomitant]
  18. OXAZEPAM [Concomitant]

REACTIONS (65)
  - ABNORMAL BEHAVIOUR [None]
  - ABNORMAL DREAMS [None]
  - ACUTE PRERENAL FAILURE [None]
  - AFFECT LABILITY [None]
  - ANGER [None]
  - ANTISOCIAL BEHAVIOUR [None]
  - ANXIETY [None]
  - ASTHENIA [None]
  - ATELECTASIS [None]
  - BLOOD CREATINE PHOSPHOKINASE INCREASED [None]
  - BLOOD GLUCOSE INCREASED [None]
  - BRADYPHRENIA [None]
  - COMA [None]
  - DECREASED APPETITE [None]
  - DEHYDRATION [None]
  - DELUSION [None]
  - DEPRESSION [None]
  - DIABETIC HYPEROSMOLAR COMA [None]
  - DISTURBANCE IN ATTENTION [None]
  - DRY MOUTH [None]
  - ELECTROLYTE IMBALANCE [None]
  - ENCEPHALOPATHY [None]
  - FATIGUE [None]
  - GENERAL PHYSICAL HEALTH DETERIORATION [None]
  - GRANDIOSITY [None]
  - HEPATIC ENZYME INCREASED [None]
  - HEPATIC STEATOSIS [None]
  - HOMICIDAL IDEATION [None]
  - HYPERCALCAEMIA [None]
  - HYPERGLYCAEMIA [None]
  - HYPERHIDROSIS [None]
  - HYPERNATRAEMIA [None]
  - HYPERSOMNIA [None]
  - HYPOMANIA [None]
  - HYPOTENSION [None]
  - HYPOVOLAEMIA [None]
  - INCOHERENT [None]
  - INSOMNIA [None]
  - IRRITABILITY [None]
  - LETHARGY [None]
  - LIVER FUNCTION TEST ABNORMAL [None]
  - LUNG INFILTRATION [None]
  - MALAISE [None]
  - MANIA [None]
  - MENINGITIS BACTERIAL [None]
  - MENTAL STATUS CHANGES [None]
  - NEGATIVISM [None]
  - NEUROLEPTIC MALIGNANT SYNDROME [None]
  - NIGHTMARE [None]
  - OBESITY [None]
  - PARANOIA [None]
  - PSYCHOTIC DISORDER [None]
  - PYREXIA [None]
  - RENAL FAILURE ACUTE [None]
  - RESTLESSNESS [None]
  - RHABDOMYOLYSIS [None]
  - SCAR [None]
  - SELF-INJURIOUS IDEATION [None]
  - SOCIAL AVOIDANT BEHAVIOUR [None]
  - SUICIDAL IDEATION [None]
  - THROMBOCYTOPENIA [None]
  - TREATMENT NONCOMPLIANCE [None]
  - URINARY INCONTINENCE [None]
  - VISION BLURRED [None]
  - WEIGHT INCREASED [None]
